FAERS Safety Report 6690017-9 (Version None)
Quarter: 2010Q2

REPORT INFORMATION
  Report Type: 
  Country: None (occurrence: None)
  Receive Date: 20100421
  Receipt Date: 20100409
  Transmission Date: 20101027
  Serious: Yes (Other)
  Sender: FDA-Public Use
  Company Number: PHHY2010US22609

PATIENT
  Sex: Female

DRUGS (4)
  1. TEKTURNA [Suspect]
     Dosage: 150 MG
     Dates: start: 20091218
  2. TEKTURNA [Suspect]
     Dosage: 300 MG, ONCE DAILY
     Dates: start: 20100113
  3. HYDROCHLOROTHIAZIDE [Suspect]
     Dosage: 12.5 MG EVERY OTHER DAY
     Dates: start: 20100212
  4. GLUCONTROL [Concomitant]

REACTIONS (5)
  - BLOOD PRESSURE DIASTOLIC DECREASED [None]
  - BLOOD PRESSURE INADEQUATELY CONTROLLED [None]
  - HEART RATE DECREASED [None]
  - SURGERY [None]
  - WEIGHT DECREASED [None]
